FAERS Safety Report 18783622 (Version 1)
Quarter: 2021Q1

REPORT INFORMATION
  Report Type: Spontaneous
  Country: CN (occurrence: CN)
  Receive Date: 20210125
  Receipt Date: 20210125
  Transmission Date: 20210419
  Serious: Yes (Hospitalization, Disabling)
  Sender: FDA-Public Use
  Company Number: CN-BAXTER-2021BAX001386

PATIENT
  Age: 2 Year
  Sex: Male
  Weight: 12 kg

DRUGS (6)
  1. UROMITEXAN [Suspect]
     Active Substance: MESNA
     Indication: RETROPERITONEAL MASS
  2. ORONA [TOPOTECAN HYDROCHLORIDE] [Suspect]
     Active Substance: TOPOTECAN HYDROCHLORIDE
     Indication: NEUROBLASTOMA
     Route: 041
     Dates: start: 20201104, end: 20201108
  3. ORONA [TOPOTECAN HYDROCHLORIDE] [Suspect]
     Active Substance: TOPOTECAN HYDROCHLORIDE
     Indication: RETROPERITONEAL MASS
  4. ENDOXAN [Suspect]
     Active Substance: CYCLOPHOSPHAMIDE
     Indication: NEUROBLASTOMA
     Route: 041
     Dates: start: 20201104, end: 20201108
  5. UROMITEXAN [Suspect]
     Active Substance: MESNA
     Indication: NEUROBLASTOMA
     Route: 041
     Dates: start: 20201104, end: 20201108
  6. ENDOXAN [Suspect]
     Active Substance: CYCLOPHOSPHAMIDE
     Indication: RETROPERITONEAL MASS

REACTIONS (2)
  - Pyrexia [Unknown]
  - Myelosuppression [Recovering/Resolving]

NARRATIVE: CASE EVENT DATE: 202011
